FAERS Safety Report 18175503 (Version 1)
Quarter: 2020Q3

REPORT INFORMATION
  Report Type: Spontaneous
  Country: GB (occurrence: GB)
  Receive Date: 20200820
  Receipt Date: 20200820
  Transmission Date: 20201103
  Serious: Yes (Disabling)
  Sender: FDA-Public Use
  Company Number: GB-PFIZER INC-2020319737

PATIENT
  Age: 58 Year
  Sex: Female

DRUGS (16)
  1. MONTELUKAST [Concomitant]
     Active Substance: MONTELUKAST SODIUM
     Dosage: 1 DF, 1X/DAY (AT NIGHT)
     Dates: start: 20200624, end: 20200722
  2. OXYCODONE HYDROCHLORIDE. [Concomitant]
     Active Substance: OXYCODONE HYDROCHLORIDE
     Dosage: 1 DF, 4X/DAY
     Dates: start: 20200327
  3. CETIRIZINE [Concomitant]
     Active Substance: CETIRIZINE HYDROCHLORIDE
     Dosage: 1 DF, 1X/DAY
     Dates: start: 20200327
  4. AMITRIPTYLINE HYDROCHLORIDE. [Concomitant]
     Active Substance: AMITRIPTYLINE HYDROCHLORIDE
     Dosage: 1 DF, 1X/DAY AT NIGHT F
     Dates: start: 20200505, end: 20200511
  5. LANSOPRAZOLE. [Concomitant]
     Active Substance: LANSOPRAZOLE
     Dosage: 1 DF, 1X/DAY
     Dates: start: 20200327
  6. BISACODYL. [Concomitant]
     Active Substance: BISACODYL
     Dosage: 1 DF, 1X/DAY (AT NIGHT)
     Dates: start: 20200327
  7. PREGABALIN. [Suspect]
     Active Substance: PREGABALIN
     Dosage: 1 DF, 3X/DAY
     Dates: start: 20200707
  8. LONGTEC [Concomitant]
     Active Substance: OXYCODONE HYDROCHLORIDE
     Dosage: 1 DF, 2X/DAY (EVERY 12 HOURS)
     Dates: start: 20200327
  9. PREGABALIN. [Suspect]
     Active Substance: PREGABALIN
     Dosage: 150 MG
     Dates: start: 20200630
  10. SALBUTAMOL [Concomitant]
     Active Substance: ALBUTEROL
     Dosage: AS NEEDED (ONE OR TWO PUFFS TO BE INHALED WHEN NEEDED)
     Route: 055
     Dates: start: 20200327
  11. PREGABALIN. [Suspect]
     Active Substance: PREGABALIN
     Dosage: 2 DF, 3X/DAY
     Dates: start: 20200714
  12. PREDNISOLONE. [Concomitant]
     Active Substance: PREDNISOLONE
     Dosage: 6 DF, 1X/DAY (IN MORNING AFTER BREAKFAST FOR 5 DAYS)
     Dates: start: 20200707, end: 20200711
  13. CITALOPRAM [Concomitant]
     Active Substance: CITALOPRAM HYDROBROMIDE
     Dosage: 1 DF, 1X/DAY IN THE MORNING
     Dates: start: 20200327
  14. AMITRIPTYLINE HYDROCHLORIDE. [Concomitant]
     Active Substance: AMITRIPTYLINE HYDROCHLORIDE
     Dosage: 2 DF, 1X/DAY
     Dates: start: 20200512, end: 20200602
  15. FOSTAIR [Concomitant]
     Active Substance: BECLOMETHASONE\FORMOTEROL
     Dosage: 100 UG
     Dates: start: 20200327
  16. DULOXETINE. [Concomitant]
     Active Substance: DULOXETINE
     Dosage: 1 DF, 1X/DAY AT NIGHT
     Dates: start: 20200707

REACTIONS (2)
  - Dyspnoea [Recovered/Resolved]
  - Gastrooesophageal reflux disease [Recovered/Resolved]

NARRATIVE: CASE EVENT DATE: 20200728
